FAERS Safety Report 20958895 (Version 2)
Quarter: 2022Q3

REPORT INFORMATION
  Report Type: Spontaneous
  Country: US (occurrence: US)
  Receive Date: 20220614
  Receipt Date: 20220706
  Transmission Date: 20221026
  Serious: Yes (Hospitalization)
  Sender: FDA-Public Use
  Company Number: US-PARI RESPIRATORY EQUIPMENT, INC.-2022PAR00031

PATIENT
  Sex: Female

DRUGS (8)
  1. KITABIS PAK [Suspect]
     Active Substance: TOBRAMYCIN
     Indication: Cystic fibrosis
     Dosage: 300 MG/5 ML (1 VIAL) VIA NEBULIZER, 2X/DAY FOR 28 DAYS
  2. KITABIS PAK [Suspect]
     Active Substance: TOBRAMYCIN
     Indication: Lung disorder
  3. AZITHROMYCIN [Concomitant]
     Active Substance: AZITHROMYCIN
  4. CREON [Concomitant]
     Active Substance: PANCRELIPASE AMYLASE\PANCRELIPASE LIPASE\PANCRELIPASE PROTEASE
  5. DEKAS PLUS [Concomitant]
  6. KALYDECO [Concomitant]
     Active Substance: IVACAFTOR
  7. ONDANSETRON [Concomitant]
     Active Substance: ONDANSETRON
  8. PULMOZYME [Concomitant]
     Active Substance: DORNASE ALFA

REACTIONS (4)
  - Cystic fibrosis [Unknown]
  - Infective pulmonary exacerbation of cystic fibrosis [Unknown]
  - Respiratory symptom [Unknown]
  - Productive cough [Unknown]
